FAERS Safety Report 8516237-6 (Version None)
Quarter: 2012Q3

REPORT INFORMATION
  Report Type: 
  Country: None (occurrence: None)
  Receive Date: 20120717
  Receipt Date: 20120709
  Transmission Date: 20120928
  Serious: No
  Sender: FDA-Public Use
  Company Number: US-009507513-1207USA002754

PATIENT

DRUGS (1)
  1. PEG-INTRON [Suspect]
     Indication: EOSINOPHILIA
     Dosage: 80 MICROGRAM, QW
     Dates: start: 20120101, end: 20120101

REACTIONS (2)
  - ADVERSE EVENT [None]
  - OFF LABEL USE [None]
